FAERS Safety Report 9484477 (Version 1)
Quarter: 2013Q3

REPORT INFORMATION
  Report Type: Spontaneous
  Country: US (occurrence: US)
  Receive Date: 20130828
  Receipt Date: 20130828
  Transmission Date: 20140515
  Serious: No
  Sender: FDA-Public Use
  Company Number: US-ABBOTT-13P-163-1091319-00

PATIENT
  Sex: Male
  Weight: 83.99 kg

DRUGS (4)
  1. ANDROGEL [Suspect]
     Indication: BLOOD TESTOSTERONE DECREASED
     Dosage: 2 PUMPS DAILY
     Dates: start: 201212, end: 201305
  2. ANDROGEL [Suspect]
     Dosage: 4 PUMPS DAILY
     Dates: start: 20130509
  3. LEVOXINE [Concomitant]
     Indication: PRODUCT USED FOR UNKNOWN INDICATION
  4. NASACORT [Concomitant]
     Indication: PRODUCT USED FOR UNKNOWN INDICATION

REACTIONS (2)
  - Musculoskeletal discomfort [Not Recovered/Not Resolved]
  - Musculoskeletal pain [Not Recovered/Not Resolved]
